FAERS Safety Report 25282068 (Version 2)
Quarter: 2025Q2

REPORT INFORMATION
  Report Type: Spontaneous
  Country: JP (occurrence: JP)
  Receive Date: 20250508
  Receipt Date: 20250619
  Transmission Date: 20250717
  Serious: No
  Sender: CHEPLAPHARM
  Company Number: JP-CHEPLA-2025005693

PATIENT
  Sex: Male

DRUGS (1)
  1. VALGANCICLOVIR [Suspect]
     Active Substance: VALGANCICLOVIR
     Route: 048

REACTIONS (1)
  - Skin exfoliation [Unknown]
